FAERS Safety Report 12764510 (Version 1)
Quarter: 2016Q3

REPORT INFORMATION
  Report Type: Spontaneous
  Country: US (occurrence: US)
  Receive Date: 20160920
  Receipt Date: 20160920
  Transmission Date: 20161109
  Serious: No
  Sender: FDA-Public Use
  Company Number: US-ALLERGAN-1602453US

PATIENT
  Age: 64 Year
  Sex: Male

DRUGS (2)
  1. LASTACAFT [Suspect]
     Active Substance: ALCAFTADINE
     Indication: EYE PRURITUS
     Dosage: 2 GTT, QD
     Route: 047
     Dates: start: 201601, end: 201601
  2. VALATAN [Concomitant]
     Indication: PRODUCT USED FOR UNKNOWN INDICATION

REACTIONS (1)
  - Drug ineffective [Unknown]

NARRATIVE: CASE EVENT DATE: 201601
